FAERS Safety Report 5228729-6 (Version None)
Quarter: 2007Q1

REPORT INFORMATION
  Report Type: 
  Country: None (occurrence: None)
  Receive Date: 20070131
  Receipt Date: 20070122
  Transmission Date: 20070707
  Serious: No
  Sender: FDA-Public Use
  Company Number: 2006AL003205

PATIENT
  Age: 83 Year
  Sex: Male

DRUGS (7)
  1. DICLOFENAC SODIUM [Suspect]
  2. CLOPIDOGREL [Concomitant]
  3. ISOSORBIDE [Concomitant]
  4. SIMVASTATIN [Concomitant]
  5. METOPROLOL SUCCINATE [Concomitant]
  6. FRUSEMIDE [Concomitant]
  7. IPRATROPIUM BROMIDE [Concomitant]

REACTIONS (5)
  - EYE HAEMORRHAGE [None]
  - RETINAL DETACHMENT [None]
  - VISUAL ACUITY REDUCED [None]
  - VITREOUS DISORDER [None]
  - VITREOUS HAEMORRHAGE [None]
